FAERS Safety Report 26154767 (Version 1)
Quarter: 2025Q4

REPORT INFORMATION
  Report Type: Spontaneous
  Country: GB (occurrence: GB)
  Receive Date: 20251215
  Receipt Date: 20251215
  Transmission Date: 20260118
  Serious: Yes (Other)
  Sender: HETERO
  Company Number: None

PATIENT
  Age: 77 Year
  Sex: Female
  Weight: 61 kg

DRUGS (7)
  1. ATORVASTATIN [Suspect]
     Active Substance: ATORVASTATIN
     Indication: Product use in unapproved indication
     Dosage: 80 MILLIGRAM, QD
     Route: 065
  2. MELATONIN [Concomitant]
     Active Substance: MELATONIN
     Indication: Product use in unapproved indication
     Dosage: 1 DOSAGE FORM, QD
     Route: 065
     Dates: start: 20250326, end: 20250510
  3. FLUTICASONE [Concomitant]
     Active Substance: FLUTICASONE
     Indication: Product use in unapproved indication
     Dosage: 2 DOSAGE FORM, QD
     Route: 065
     Dates: start: 20250423
  4. PENICILLIN V [Concomitant]
     Active Substance: PENICILLIN V
     Indication: Product use in unapproved indication
     Dosage: 2 DOSAGE FORM, QID
     Route: 065
     Dates: start: 20250423, end: 20250522
  5. SPIKEVAX JN.1 [Concomitant]
     Indication: Product use in unapproved indication
     Dosage: 0.5 MILLILITER
     Route: 030
     Dates: start: 20250425
  6. LANSOPRAZOLE [Concomitant]
     Active Substance: LANSOPRAZOLE
     Indication: Product use in unapproved indication
     Dosage: 1 DOSAGE FORM, QD
     Route: 065
     Dates: start: 20250509
  7. ZOPICLONE [Concomitant]
     Active Substance: ZOPICLONE
     Indication: Product use in unapproved indication
     Dosage: PRN (ONE OR TWO TO BE TAKEN AT NIGHT PRN - NOT FOR REGULAR USE)
     Route: 065
     Dates: start: 20250509

REACTIONS (5)
  - Acute kidney injury [Not Recovered/Not Resolved]
  - Liver injury [Unknown]
  - Liver function test abnormal [Recovered/Resolved]
  - Fatigue [Not Recovered/Not Resolved]
  - Malaise [Recovered/Resolved]
